FAERS Safety Report 9422236 (Version 3)
Quarter: 2015Q2

REPORT INFORMATION
  Report Type: Report from Study
  Country: ES (occurrence: US)
  Receive Date: 20130726
  Receipt Date: 20150630
  Transmission Date: 20150821
  Serious: Yes (Other)
  Sender: FDA-Public Use
  Company Number: US-MERCK-1307USA010638

PATIENT
  Age: 47 Year
  Sex: Male

DRUGS (3)
  1. PEGINTRON [Suspect]
     Active Substance: PEGINTERFERON ALFA-2B
     Indication: HEPATITIS C
  2. REBETOL [Suspect]
     Active Substance: RIBAVIRIN
     Indication: HEPATITIS C
     Route: 048
  3. ALISPORIVIR [Suspect]
     Active Substance: ALISPORIVIR
     Dosage: 400 MG, BID

REACTIONS (1)
  - Pancreatitis acute [Recovered/Resolved]
